FAERS Safety Report 11163993 (Version 1)
Quarter: 2015Q2

REPORT INFORMATION
  Report Type: Spontaneous
  Country: QA (occurrence: None)
  Receive Date: 20150602
  Receipt Date: 20150602
  Transmission Date: 20150821
  Serious: Yes (Life-Threatening, Other)
  Sender: FDA-Public Use
  Company Number: BD-2015-0423

PATIENT
  Age: 28 Year
  Sex: Male

DRUGS (2)
  1. AMLODIPINE [Concomitant]
     Active Substance: AMLODIPINE BESYLATE
  2. METOCLOPRAMIDE. [Suspect]
     Active Substance: METOCLOPRAMIDE
     Indication: PRODUCT USED FOR UNKNOWN INDICATION
     Dosage: 10 MG, OVER 5 S, INTRAVENOUS
     Route: 042

REACTIONS (6)
  - Hypokalaemia [None]
  - Diarrhoea [None]
  - Loss of consciousness [None]
  - Tricuspid valve incompetence [None]
  - Pyrexia [None]
  - Cardiac arrest [None]
